FAERS Safety Report 20862331 (Version 4)
Quarter: 2022Q4

REPORT INFORMATION
  Report Type: Report from Study
  Country: US (occurrence: US)
  Receive Date: 20220523
  Receipt Date: 20221006
  Transmission Date: 20230113
  Serious: Yes (Hospitalization)
  Sender: FDA-Public Use
  Company Number: US-NOVARTISPH-NVSC2022US116404

PATIENT
  Sex: Female

DRUGS (1)
  1. ENTRESTO [Suspect]
     Active Substance: SACUBITRIL\VALSARTAN
     Indication: Product used for unknown indication
     Dosage: 1 DOSAGE FORM, BID (24/26 MG)
     Route: 048

REACTIONS (6)
  - Hypotension [Recovered/Resolved]
  - Presyncope [Recovered/Resolved]
  - Dyspnoea [Recovering/Resolving]
  - Exercise tolerance decreased [Recovering/Resolving]
  - Headache [Not Recovered/Not Resolved]
  - Drug ineffective [Recovered/Resolved]
